FAERS Safety Report 8988224 (Version 1)
Quarter: 2012Q4

REPORT INFORMATION
  Report Type: 
  Country: JP (occurrence: JP)
  Receive Date: 20121227
  Receipt Date: 20121227
  Transmission Date: 20130627
  Serious: Yes (Other)
  Sender: FDA-Public Use
  Company Number: JP-ASTELLAS-2012JP011997

PATIENT
  Age: 68 Year
  Sex: Male

DRUGS (3)
  1. FUNGUARD [Suspect]
     Indication: BRONCHOPULMONARY ASPERGILLOSIS
     Dosage: 150 mg, Unknown/D
     Route: 065
  2. MEROPENEM [Concomitant]
     Route: 065
  3. AMPHOTERICIN B [Concomitant]
     Indication: BRONCHOPULMONARY ASPERGILLOSIS
     Dosage: 5 mg/kg, Unknown/D
     Route: 065

REACTIONS (2)
  - Drug ineffective [Unknown]
  - Endocarditis [Recovering/Resolving]
